FAERS Safety Report 24568093 (Version 3)
Quarter: 2024Q4

REPORT INFORMATION
  Report Type: Spontaneous
  Country: DE (occurrence: DE)
  Receive Date: 20241031
  Receipt Date: 20241213
  Transmission Date: 20250114
  Serious: Yes (Life-Threatening, Hospitalization, Other)
  Sender: TEVA
  Company Number: DE-TEVA-VS-3257325

PATIENT
  Age: 38 Year
  Sex: Female

DRUGS (4)
  1. DEXAMETHASONE [Suspect]
     Active Substance: DEXAMETHASONE
     Indication: Headache
     Route: 065
  2. BRIGATINIB [Suspect]
     Active Substance: BRIGATINIB
     Indication: Non-small cell lung cancer
     Route: 065
  3. ALECTINIB [Suspect]
     Active Substance: ALECTINIB
     Indication: Non-small cell lung cancer
     Route: 065
  4. CERITINIB [Suspect]
     Active Substance: CERITINIB
     Indication: Non-small cell lung cancer
     Dosage: RECEIVED FOR 2 AND HALF MONTHS
     Route: 065

REACTIONS (6)
  - Hepatic enzyme increased [Unknown]
  - Cerebral disorder [Recovering/Resolving]
  - Necrosis [Recovering/Resolving]
  - Maternal exposure during pregnancy [Unknown]
  - Pneumonitis [Recovered/Resolved]
  - Live birth [Unknown]
